FAERS Safety Report 11422122 (Version 2)
Quarter: 2015Q4

REPORT INFORMATION
  Report Type: Report from Study
  Country: GB (occurrence: GB)
  Receive Date: 20150827
  Receipt Date: 20151001
  Transmission Date: 20160304
  Serious: Yes (Other)
  Sender: FDA-Public Use
  Company Number: GB-ABBVIE-15K-167-1440712-00

PATIENT
  Age: 69 Year
  Sex: Female
  Weight: 56 kg

DRUGS (5)
  1. ATORVASTATIN [Concomitant]
     Active Substance: ATORVASTATIN
     Indication: PRODUCT USED FOR UNKNOWN INDICATION
     Route: 048
  2. CITALOPRAM [Concomitant]
     Active Substance: CITALOPRAM HYDROBROMIDE
     Indication: DEPRESSED MOOD
     Route: 048
  3. METHOTREXATE [Concomitant]
     Active Substance: METHOTREXATE
     Indication: RHEUMATOID ARTHRITIS
     Route: 048
  4. SULFASALAZINE. [Concomitant]
     Active Substance: SULFASALAZINE
     Indication: RHEUMATOID ARTHRITIS
     Route: 048
  5. HUMIRA [Suspect]
     Active Substance: ADALIMUMAB
     Indication: RHEUMATOID ARTHRITIS
     Route: 065
     Dates: start: 200209, end: 201506

REACTIONS (3)
  - Malaise [Unknown]
  - Diverticular perforation [Unknown]
  - Intestinal perforation [Unknown]

NARRATIVE: CASE EVENT DATE: 201506
